FAERS Safety Report 13038231 (Version 2)
Quarter: 2017Q4

REPORT INFORMATION
  Report Type: Spontaneous
  Country: US (occurrence: US)
  Receive Date: 20161219
  Receipt Date: 20171213
  Transmission Date: 20180320
  Serious: No
  Sender: FDA-Public Use
  Company Number: US-AUROBINDO-AUR-APL-2015-07671

PATIENT
  Sex: Male
  Weight: 113 kg

DRUGS (1)
  1. FINASTERIDE TABLETS USP 5MG [Suspect]
     Active Substance: FINASTERIDE
     Indication: THYROID DISORDER
     Dosage: 5 MG, DAILY
     Route: 048

REACTIONS (2)
  - Thyroid disorder [Recovered/Resolved]
  - Off label use [Recovered/Resolved]
